FAERS Safety Report 4647339-2 (Version None)
Quarter: 2005Q2

REPORT INFORMATION
  Report Type: 
  Country: None (occurrence: None)
  Receive Date: 20050426
  Receipt Date: 20050419
  Transmission Date: 20051028
  Serious: Yes (Other)
  Sender: FDA-Public Use
  Company Number: 2005062157

PATIENT
  Age: 77 Year
  Sex: Male
  Weight: 90.7194 kg

DRUGS (5)
  1. LIPITOR [Suspect]
     Indication: BLOOD CHOLESTEROL INCREASED
     Dosage: 10 MG (10 MG, 1 IN 1 D)
  2. PRINZIDE [Concomitant]
  3. LAMOTRIGINE [Concomitant]
  4. MIRTAZAPINE [Concomitant]
  5. TERBINAFINE HCL [Concomitant]

REACTIONS (5)
  - BLOOD CREATINE PHOSPHOKINASE INCREASED [None]
  - CONTUSION [None]
  - FUNGAL INFECTION [None]
  - MUSCLE STRAIN [None]
  - PROSTATIC DISORDER [None]
